FAERS Safety Report 8035504-6 (Version None)
Quarter: 2012Q1

REPORT INFORMATION
  Report Type: 
  Country: None (occurrence: None)
  Receive Date: 20120110
  Receipt Date: 20120110
  Transmission Date: 20120608
  Serious: No
  Sender: FDA-Public Use
  Company Number: None

PATIENT
  Age: 71 Year
  Sex: Male
  Weight: 97.4 kg

DRUGS (1)
  1. AMIODARONE HCL [Suspect]
     Indication: PULMONARY TOXICITY
     Dates: start: 20101029, end: 20110830

REACTIONS (1)
  - PULMONARY TOXICITY [None]
